FAERS Safety Report 9345934 (Version 1)
Quarter: 2013Q2

REPORT INFORMATION
  Report Type: Spontaneous
  Country: US (occurrence: US)
  Receive Date: 20130613
  Receipt Date: 20130613
  Transmission Date: 20140414
  Serious: Yes (Other)
  Sender: FDA-Public Use
  Company Number: US-BAYER-2013-070907

PATIENT
  Age: 32 Year
  Sex: Female

DRUGS (2)
  1. YAZ [Suspect]
  2. MIRAPEX [Concomitant]
     Indication: PAIN IN EXTREMITY

REACTIONS (2)
  - Cerebrovascular accident [None]
  - Deep vein thrombosis [None]
